FAERS Safety Report 7110097-6 (Version None)
Quarter: 2010Q4

REPORT INFORMATION
  Report Type: 
  Country: None (occurrence: None)
  Receive Date: 20101118
  Receipt Date: 20101108
  Transmission Date: 20110411
  Serious: No
  Sender: FDA-Public Use
  Company Number: US-JNJFOC-20100905404

PATIENT
  Sex: Female
  Weight: 49.9 kg

DRUGS (4)
  1. FENTANYL-100 [Suspect]
     Indication: PAIN
     Route: 062
  2. SPIRIVA [Concomitant]
     Indication: ILL-DEFINED DISORDER
     Dosage: ONE PUFF EVERY DAY
     Route: 055
  3. OXYCODONE HCL AND ACETAMINOPHEN [Concomitant]
     Indication: ILL-DEFINED DISORDER
     Route: 065
  4. XANAX [Concomitant]
     Indication: ILL-DEFINED DISORDER
     Dosage: AS NECESSARY
     Route: 048

REACTIONS (2)
  - DRUG DOSE OMISSION [None]
  - PRODUCT QUALITY ISSUE [None]
